FAERS Safety Report 14331607 (Version 4)
Quarter: 2019Q2

REPORT INFORMATION
  Report Type: Report from Study
  Country: None (occurrence: US)
  Receive Date: 20171228
  Receipt Date: 20190425
  Transmission Date: 20190711
  Serious: Yes (Hospitalization, Other)
  Sender: FDA-Public Use
  Company Number: US-ABBVIE-17K-163-2204856-00

PATIENT
  Age: 65 Year
  Sex: Female
  Weight: 68.1 kg

DRUGS (16)
  1. PLAVIX [Concomitant]
     Active Substance: CLOPIDOGREL BISULFATE
     Indication: ANTICOAGULANT THERAPY
  2. INDAPAMIDE. [Concomitant]
     Active Substance: INDAPAMIDE
     Indication: DIURETIC THERAPY
  3. BACTRIM [Concomitant]
     Active Substance: SULFAMETHOXAZOLE\TRIMETHOPRIM
     Indication: INFECTION
  4. TOPROL XL [Suspect]
     Active Substance: METOPROLOL SUCCINATE
     Indication: BLOOD PRESSURE MEASUREMENT
     Route: 065
  5. MECLIZINE [Concomitant]
     Active Substance: MECLIZINE HYDROCHLORIDE
     Indication: MENIERE^S DISEASE
  6. POTASSIUM [Concomitant]
     Active Substance: POTASSIUM
     Indication: BLOOD POTASSIUM DECREASED
  7. METHOTREXATE. [Suspect]
     Active Substance: METHOTREXATE
     Indication: RHEUMATOID ARTHRITIS
     Route: 065
  8. FOSAMAX [Concomitant]
     Active Substance: ALENDRONATE SODIUM
     Indication: BONE DISORDER
  9. PREDNISONE. [Concomitant]
     Active Substance: PREDNISONE
     Indication: INFLAMMATION
  10. PLETAL [Concomitant]
     Active Substance: CILOSTAZOL
     Indication: ANTICOAGULANT THERAPY
  11. LISINOPRIL. [Concomitant]
     Active Substance: LISINOPRIL
     Indication: BLOOD PRESSURE MEASUREMENT
  12. CRESTOR [Concomitant]
     Active Substance: ROSUVASTATIN CALCIUM
     Indication: BLOOD CHOLESTEROL
  13. SOTALOL. [Concomitant]
     Active Substance: SOTALOL
     Indication: SUPRAVENTRICULAR TACHYCARDIA
  14. HUMIRA [Suspect]
     Active Substance: ADALIMUMAB
     Indication: RHEUMATOID ARTHRITIS
     Route: 058
     Dates: start: 201503, end: 201710
  15. GABAPENTIN. [Concomitant]
     Active Substance: GABAPENTIN
     Indication: BACK PAIN
  16. PRILOSEC [Concomitant]
     Active Substance: OMEPRAZOLE MAGNESIUM
     Indication: GASTRIC DISORDER

REACTIONS (23)
  - Pulmonary oedema [Unknown]
  - Trigger finger [Unknown]
  - Musculoskeletal disorder [Unknown]
  - Arthropathy [Not Recovered/Not Resolved]
  - Rheumatoid arthritis [Not Recovered/Not Resolved]
  - Necrosis [Unknown]
  - Spinal stenosis [Recovering/Resolving]
  - Intervertebral disc protrusion [Recovered/Resolved]
  - Oxygen saturation decreased [Recovered/Resolved]
  - Impaired healing [Recovering/Resolving]
  - Candida infection [Unknown]
  - Fall [Recovering/Resolving]
  - Arthralgia [Unknown]
  - Back pain [Unknown]
  - Pain in extremity [Unknown]
  - Hypotension [Not Recovered/Not Resolved]
  - Wound infection staphylococcal [Unknown]
  - Cataract [Unknown]
  - Pain in extremity [Recovered/Resolved]
  - Bronchitis [Recovered/Resolved]
  - Carotid artery occlusion [Not Recovered/Not Resolved]
  - Bursitis [Recovering/Resolving]
  - Spinal cord disorder [Unknown]

NARRATIVE: CASE EVENT DATE: 2015
